FAERS Safety Report 9971729 (Version 1)
Quarter: 2014Q1

REPORT INFORMATION
  Report Type: Spontaneous
  Country: None (occurrence: None)
  Receive Date: 20140304
  Receipt Date: 20140304
  Transmission Date: 20141002
  Serious: Yes (Hospitalization, Disabling)
  Sender: FDA-Public Use
  Company Number: 2014P1001616

PATIENT
  Age: 23 Year
  Sex: Female

DRUGS (1)
  1. METRONIDAZOLE [Suspect]
     Indication: DIARRHOEA

REACTIONS (7)
  - Sudden hearing loss [None]
  - Tinnitus [None]
  - Nervousness [None]
  - Tenderness [None]
  - Deafness neurosensory [None]
  - Pain in extremity [None]
  - Deafness transitory [None]
